FAERS Safety Report 20544589 (Version 6)
Quarter: 2022Q3

REPORT INFORMATION
  Report Type: Spontaneous
  Country: JP (occurrence: JP)
  Receive Date: 20220303
  Receipt Date: 20220903
  Transmission Date: 20221027
  Serious: Yes (Hospitalization, Other)
  Sender: FDA-Public Use
  Company Number: JP-KYOWAKIRIN-2022AKK002730

PATIENT
  Age: 68 Year
  Sex: Male
  Weight: 54 kg

DRUGS (11)
  1. VECTIBIX [Suspect]
     Active Substance: PANITUMUMAB
     Indication: Rectal cancer
     Dosage: 310 MG, 1X/2 WEEKS
     Route: 041
     Dates: start: 20200805, end: 20210108
  2. PEGFILGRASTIM [Suspect]
     Active Substance: PEGFILGRASTIM
     Indication: Neutrophil count decreased
     Dosage: UNK
     Route: 058
  3. FLUOROURACIL [Suspect]
     Active Substance: FLUOROURACIL
     Indication: Rectal cancer
     Dosage: 2970 MG, 1X/2 WEEKS
     Route: 041
     Dates: start: 20200805, end: 20210108
  4. LEVOLEUCOVORIN CALCIUM [Suspect]
     Active Substance: LEVOLEUCOVORIN CALCIUM
     Indication: Rectal cancer
     Dosage: 300 MILLIGRAM, Q2WEEKS
     Route: 041
     Dates: start: 20200805, end: 20210108
  5. OXALIPLATIN [Suspect]
     Active Substance: OXALIPLATIN
     Indication: Rectal cancer
     Dosage: 105 MG, 1X/2 WEEKS
     Route: 041
     Dates: start: 20200805, end: 20210108
  6. MIROGABALIN BESYLATE [Concomitant]
     Active Substance: MIROGABALIN BESYLATE
     Indication: Rectal cancer
     Dosage: 5 MG, BID
     Route: 048
     Dates: start: 20200915
  7. CELECOXIB [Concomitant]
     Active Substance: CELECOXIB
     Indication: Rectal cancer
     Dosage: 100 MG, BID
     Route: 048
     Dates: start: 20201110, end: 20210108
  8. NEXIUM [Concomitant]
     Active Substance: ESOMEPRAZOLE MAGNESIUM
     Indication: Rectal cancer
     Dosage: 20 MG, QD
     Route: 048
     Dates: start: 20200719
  9. ROXITHROMYCIN [Concomitant]
     Active Substance: ROXITHROMYCIN
     Indication: Rectal cancer
     Dosage: 150 MG, BID
     Route: 048
     Dates: start: 20201110, end: 20210108
  10. ACETAMINOPHEN\TRAMADOL HYDROCHLORIDE [Concomitant]
     Active Substance: ACETAMINOPHEN\TRAMADOL HYDROCHLORIDE
     Indication: Rectal cancer
     Dosage: 1 DF, QID
     Route: 048
     Dates: start: 20200624
  11. MAGNESIUM OXIDE [Concomitant]
     Active Substance: MAGNESIUM OXIDE
     Dosage: UNK
     Route: 048
     Dates: start: 20200618

REACTIONS (4)
  - Pneumatosis intestinalis [Recovered/Resolved]
  - Gastrointestinal mucosal disorder [Recovering/Resolving]
  - Therapeutic procedure [Unknown]
  - Off label use [Unknown]

NARRATIVE: CASE EVENT DATE: 20210114
